FAERS Safety Report 8608840-X (Version None)
Quarter: 2012Q3

REPORT INFORMATION
  Report Type: 
  Country: None (occurrence: None)
  Receive Date: 20120821
  Receipt Date: 20120806
  Transmission Date: 20120928
  Serious: Yes (Hospitalization, Other)
  Sender: FDA-Public Use
  Company Number: BR-ROCHE-1102921

PATIENT

DRUGS (2)
  1. PEGINTERFERON ALFA-2A [Suspect]
     Indication: HEPATITIS C
     Route: 058
  2. COPEGUS [Suspect]
     Indication: HEPATITIS C
     Dosage: FOR 24 WEEKS
     Route: 048

REACTIONS (10)
  - NEUTROPENIA [None]
  - ANAEMIA [None]
  - LEUKOPENIA [None]
  - SYNCOPE [None]
  - THROMBOCYTOPENIA [None]
  - PNEUMONIA [None]
  - HYPONATRAEMIA [None]
  - MIGRAINE [None]
  - OESOPHAGEAL VARICES HAEMORRHAGE [None]
  - CYSTITIS [None]
